FAERS Safety Report 12993457 (Version 1)
Quarter: 2016Q4

REPORT INFORMATION
  Report Type: Spontaneous
  Country: US (occurrence: US)
  Receive Date: 20161201
  Receipt Date: 20161201
  Transmission Date: 20170207
  Serious: No
  Sender: FDA-Public Use
  Company Number: None

PATIENT
  Age: 76 Year
  Sex: Female
  Weight: 65.77 kg

DRUGS (15)
  1. DEXILANT [Concomitant]
     Active Substance: DEXLANSOPRAZOLE
  2. MULTI VIT [Concomitant]
  3. VASCEPA [Suspect]
     Active Substance: ICOSAPENT ETHYL
     Indication: BLOOD TRIGLYCERIDES INCREASED
     Route: 048
     Dates: start: 20161007, end: 20161024
  4. PLAVIX [Concomitant]
     Active Substance: CLOPIDOGREL BISULFATE
  5. MUCUS RELIEF [Concomitant]
     Active Substance: GUAIFENESIN
  6. INHALER [Concomitant]
     Active Substance: UNSPECIFIED INGREDIENT
  7. IMDUR [Concomitant]
     Active Substance: ISOSORBIDE MONONITRATE
  8. CALCIUM [Concomitant]
     Active Substance: CALCIUM
  9. LIPITOR [Concomitant]
     Active Substance: ATORVASTATIN CALCIUM
  10. VITAMIN B COMPLEX [Concomitant]
     Active Substance: CYANOCOBALAMIN\DEXPANTHENOL\NIACINAMIDE\PYRIDOXINE HYDROCHLORIDE\RIBOFLAVIN 5^-PHOSPHATE SODIUM\THIAMINE HYDROCHLORIDE\VITAMIN B COMPLEX
  11. POTASSIUM [Concomitant]
     Active Substance: POTASSIUM
  12. TYLENOL [Concomitant]
     Active Substance: ACETAMINOPHEN
  13. REGLAN [Concomitant]
     Active Substance: METOCLOPRAMIDE HYDROCHLORIDE
  14. NORVASC [Concomitant]
     Active Substance: AMLODIPINE BESYLATE
  15. THYROID [Concomitant]
     Active Substance: LEVOTHYROXINE\LIOTHYRONINE

REACTIONS (6)
  - Pruritus [None]
  - Dyspnoea [None]
  - Urticaria [None]
  - Myalgia [None]
  - Cough [None]
  - Asthma [None]

NARRATIVE: CASE EVENT DATE: 20161014
